FAERS Safety Report 9417541 (Version 1)
Quarter: 2013Q3

REPORT INFORMATION
  Report Type: Spontaneous
  Country: US (occurrence: None)
  Receive Date: 20130722
  Receipt Date: 20130722
  Transmission Date: 20140515
  Serious: Yes (Life-Threatening, Hospitalization)
  Sender: FDA-Public Use
  Company Number: None

PATIENT
  Sex: Male
  Weight: 72.58 kg

DRUGS (1)
  1. CYMBALTA [Suspect]
     Indication: ARTHRALGIA
     Dates: start: 20130401, end: 20130404

REACTIONS (4)
  - Hyponatraemia [None]
  - Dyspnoea [None]
  - Tremor [None]
  - Dizziness [None]
